FAERS Safety Report 9101007 (Version 2)
Quarter: 2013Q1

REPORT INFORMATION
  Report Type: Report from Study
  Country: DE (occurrence: DE)
  Receive Date: 20130215
  Receipt Date: 20130228
  Transmission Date: 20140127
  Serious: Yes (Hospitalization)
  Sender: FDA-Public Use
  Company Number: DE-ROCHE-1191251

PATIENT
  Age: 50 Year
  Sex: Female
  Weight: 78 kg

DRUGS (6)
  1. PEG-INTERFERON ALFA 2A [Suspect]
     Indication: CHRONIC HEPATITIS C
     Route: 058
     Dates: start: 20111125, end: 20120706
  2. RIBAVIRIN [Suspect]
     Indication: CHRONIC HEPATITIS C
     Route: 048
     Dates: start: 20111125, end: 20120712
  3. BOCEPREVIR [Suspect]
     Indication: CHRONIC HEPATITIS C
     Route: 048
     Dates: start: 20111223, end: 20120712
  4. PANTOZOL [Concomitant]
     Indication: PEPTIC ULCER
     Route: 048
     Dates: start: 20120131, end: 20120712
  5. AZATHIOPRIN [Concomitant]
     Indication: RHEUMATOID ARTHRITIS
     Route: 048
     Dates: end: 20120712
  6. PREDNISOLON [Concomitant]
     Indication: RHEUMATOID ARTHRITIS
     Route: 048
     Dates: end: 20120712

REACTIONS (4)
  - Anaemia [Recovered/Resolved]
  - Transfusion reaction [Recovered/Resolved]
  - Cutaneous vasculitis [Not Recovered/Not Resolved]
  - Skin infection [Not Recovered/Not Resolved]
